FAERS Safety Report 15304588 (Version 1)
Quarter: 2018Q3

REPORT INFORMATION
  Report Type: Spontaneous
  Country: US (occurrence: US)
  Receive Date: 20180809
  Receipt Date: 20180809
  Transmission Date: 20181010
  Serious: Yes (Other)
  Sender: FDA-Public Use
  Company Number: None

PATIENT
  Age: 50 Year
  Sex: Female
  Weight: 83.25 kg

DRUGS (1)
  1. SECRET CLINICAL STRENGTH INVISIBLE PROTECTION [Suspect]
     Active Substance: ALUMINUM ZIRCONIUM TETRACHLOROHYDREX GLY
     Indication: HYPERHIDROSIS
     Dosage: ?          QUANTITY:1 GRAMS;?
     Route: 061
     Dates: start: 20180803, end: 20180804

REACTIONS (2)
  - Application site rash [None]
  - Rash pruritic [None]

NARRATIVE: CASE EVENT DATE: 20180803
